FAERS Safety Report 24300500 (Version 1)
Quarter: 2024Q3

REPORT INFORMATION
  Report Type: Spontaneous
  Country: US (occurrence: None)
  Receive Date: 20240910
  Receipt Date: 20240910
  Transmission Date: 20241017
  Serious: No
  Sender: ASTRAZENECA
  Company Number: 2024A202755

PATIENT
  Sex: Female

DRUGS (2)
  1. OMEPRAZOLE [Suspect]
     Active Substance: OMEPRAZOLE
     Route: 048
  2. INFLECTRA [Suspect]
     Active Substance: INFLIXIMAB-DYYB

REACTIONS (5)
  - Sensation of foreign body [Unknown]
  - Odynophagia [Unknown]
  - Tonsillolith [Unknown]
  - Eagle^s syndrome [Unknown]
  - Tremor [Unknown]
